FAERS Safety Report 8952865 (Version 1)
Quarter: 2012Q4

REPORT INFORMATION
  Report Type: 
  Country: US (occurrence: US)
  Receive Date: 20121203
  Receipt Date: 20121203
  Transmission Date: 20130627
  Serious: Yes (Other)
  Sender: FDA-Public Use
  Company Number: CHPA2012US023801

PATIENT
  Age: 65 Year
  Sex: Female

DRUGS (8)
  1. THERAFLU FLU AND SORE THROAT [Suspect]
     Indication: HEADACHE
     Dosage: 1/3 PACKET, PRN
     Route: 048
     Dates: start: 1972
  2. GAS-X [Suspect]
     Dosage: 1 DF, DAILY BEFORE MEALS
  3. TRIAMINIC COLD AND ALLERGY [Suspect]
     Indication: NASOPHARYNGITIS
     Dosage: 1 TSP, COUPLE OF TIMES
     Route: 048
     Dates: start: 2011, end: 2011
  4. BENEFIBER UNKNOWN [Suspect]
     Indication: CONSTIPATION
     Dosage: UNK
     Route: 048
     Dates: start: 2002, end: 2002
  5. THERAFLU FLU [Suspect]
     Dosage: Unk, Unk
     Route: 048
     Dates: start: 2011, end: 2011
  6. MIRALAX [Concomitant]
     Indication: CONSTIPATION
     Dosage: Unk, Unk
  7. DRUG THERAPY NOS [Concomitant]
     Dosage: Unk, Unk
  8. DULCOLAX [Concomitant]
     Indication: CONSTIPATION

REACTIONS (21)
  - Irritable bowel syndrome [Not Recovered/Not Resolved]
  - Gastritis [Recovered/Resolved]
  - Bronchitis [Unknown]
  - Sinusitis [Unknown]
  - Sinus headache [Recovered/Resolved]
  - Paraesthesia [Recovered/Resolved]
  - Muscle spasms [Recovered/Resolved]
  - Abdominal pain upper [Recovered/Resolved]
  - Tremor [Recovered/Resolved]
  - Chills [Recovered/Resolved]
  - Malaise [Not Recovered/Not Resolved]
  - Gastrointestinal disorder [Not Recovered/Not Resolved]
  - Flatulence [Recovered/Resolved]
  - Pain [Not Recovered/Not Resolved]
  - Sinus congestion [Not Recovered/Not Resolved]
  - Rhinorrhoea [Not Recovered/Not Resolved]
  - Pruritus [Not Recovered/Not Resolved]
  - Blood glucose decreased [Not Recovered/Not Resolved]
  - Malaise [None]
  - Gastric disorder [None]
  - Muscle spasms [None]
